FAERS Safety Report 15699855 (Version 2)
Quarter: 2018Q4

REPORT INFORMATION
  Report Type: Report from Study
  Country: RO (occurrence: RO)
  Receive Date: 20181207
  Receipt Date: 20181217
  Transmission Date: 20190205
  Serious: Yes (Other)
  Sender: FDA-Public Use
  Company Number: RO-GILEAD-2018-0347934

PATIENT
  Age: 59 Year
  Sex: Male

DRUGS (12)
  1. RIBAVIRIN. [Suspect]
     Active Substance: RIBAVIRIN
     Indication: HEPATITIS C
     Dosage: 3 DF, QD
     Route: 048
     Dates: start: 20180619, end: 20180910
  2. NORMIX [Concomitant]
     Active Substance: RIFAXIMIN
  3. MILGAMMA                           /00089801/ [Concomitant]
  4. LEDIPASVIR/SOFOSBUVIR [Suspect]
     Active Substance: LEDIPASVIR\SOFOSBUVIR
     Indication: HEPATITIS C
     Dosage: 1 DF, QD
     Route: 048
     Dates: start: 20180619, end: 20180910
  5. LEDIPASVIR/SOFOSBUVIR [Suspect]
     Active Substance: LEDIPASVIR\SOFOSBUVIR
     Indication: HEPATIC CIRRHOSIS
  6. RIBAVIRIN. [Suspect]
     Active Substance: RIBAVIRIN
     Indication: HEPATIC CIRRHOSIS
  7. URSOFALK [Concomitant]
     Active Substance: URSODIOL
  8. SARGENOR [Concomitant]
     Active Substance: ARGININE ASPARTATE
  9. HEPA-MERZ                          /01390204/ [Concomitant]
  10. DULCOLAX (BISACODYL) [Concomitant]
     Active Substance: BISACODYL
  11. DIUREX                             /00022001/ [Concomitant]
  12. THIOSSEN [Concomitant]
     Active Substance: THIOCTIC ACID
     Indication: DIABETES MELLITUS

REACTIONS (5)
  - Paresis [Not Recovered/Not Resolved]
  - Vision blurred [Not Recovered/Not Resolved]
  - Hepatic encephalopathy [Recovered/Resolved]
  - Somnolence [Not Recovered/Not Resolved]
  - Hypersomnia [Not Recovered/Not Resolved]

NARRATIVE: CASE EVENT DATE: 20180625
